FAERS Safety Report 8954782 (Version 4)
Quarter: 2013Q4

REPORT INFORMATION
  Report Type: Spontaneous
  Country: US (occurrence: US)
  Receive Date: 20121207
  Receipt Date: 20131121
  Transmission Date: 20140711
  Serious: Yes (Life-Threatening, Hospitalization)
  Sender: FDA-Public Use
  Company Number: US-FRI-1000040827

PATIENT
  Age: 46 Year
  Sex: Male
  Weight: 151 kg

DRUGS (10)
  1. TEFLARO [Suspect]
     Indication: STAPHYLOCOCCAL INFECTION
     Dosage: 1800 MG
     Route: 042
     Dates: start: 20120616, end: 20120729
  2. TEFLARO [Suspect]
     Indication: OSTEOMYELITIS
  3. LORTAB 5/500 [Concomitant]
  4. CELEBREX [Concomitant]
     Dosage: 200 MG
  5. LISINOPRIL [Concomitant]
     Dosage: 5 MG
  6. K-DUR [Concomitant]
     Dosage: 10 MEQ
  7. METOPROLOL [Concomitant]
     Dosage: 25 MG
  8. PRANDIN [Concomitant]
     Dosage: 2 MG
  9. ROBAXIN [Concomitant]
     Indication: MUSCLE SPASMS
  10. ALBUTEROL [Concomitant]

REACTIONS (1)
  - Eosinophilic pneumonia [Recovered/Resolved]
